FAERS Safety Report 8110957-3 (Version None)
Quarter: 2012Q1

REPORT INFORMATION
  Report Type: 
  Country: None (occurrence: None)
  Receive Date: 20120203
  Receipt Date: 20110105
  Transmission Date: 20120608
  Serious: No
  Sender: FDA-Public Use
  Company Number: US-GLAXOSMITHKLINE-A0904233A

PATIENT
  Age: 54 Year
  Sex: Female
  Weight: 84.1 kg

DRUGS (9)
  1. TOVIAZ [Suspect]
     Indication: BLADDER DISORDER
     Dosage: 4MG UNKNOWN
     Route: 048
     Dates: start: 20101201
  2. OMEPRAZOLE [Concomitant]
  3. CYMBALTA [Suspect]
     Indication: EPILEPSY
     Dosage: 60MG UNKNOWN
  4. METOPROLOL [Concomitant]
  5. LAMICTAL [Suspect]
     Indication: EPILEPSY
     Dosage: 150MG TWICE PER DAY
  6. TRILEPTAL [Suspect]
     Indication: EPILEPSY
     Dosage: 600MG UNKNOWN
  7. PHENOBARBITAL TAB [Concomitant]
  8. PREVACID [Concomitant]
  9. LEVOTHYROXINE SODIUM [Concomitant]

REACTIONS (2)
  - DRY MOUTH [None]
  - UPPER RESPIRATORY TRACT CONGESTION [None]
